FAERS Safety Report 7638201-1 (Version None)
Quarter: 2011Q3

REPORT INFORMATION
  Report Type: 
  Country: None (occurrence: None)
  Receive Date: 20110722
  Receipt Date: 20110722
  Transmission Date: 20111222
  Serious: Yes (Life-Threatening, Hospitalization)
  Sender: FDA-Public Use
  Company Number: None

PATIENT
  Age: 82 Year
  Sex: Male
  Weight: 61.2356 kg

DRUGS (1)
  1. INDOMETHACIN [Suspect]
     Indication: LOCAL SWELLING
     Dosage: 1 CAPSULE 3X PER DAY
     Dates: start: 20110105, end: 20110112

REACTIONS (2)
  - VALVULOPLASTY CARDIAC [None]
  - HEART VALVE REPLACEMENT [None]
